FAERS Safety Report 5989159-2 (Version None)
Quarter: 2008Q4

REPORT INFORMATION
  Report Type: 
  Country: None (occurrence: None)
  Receive Date: 20081204
  Receipt Date: 20081121
  Transmission Date: 20090506
  Serious: Yes (Hospitalization)
  Sender: FDA-Public Use
  Company Number: IMP_03966_2008

PATIENT
  Age: 31 Year
  Sex: Female

DRUGS (2)
  1. MINOCYCLINE (MINOCYCLINE) 50 MG [Suspect]
     Indication: DRUG USE FOR UNKNOWN INDICATION
     Dosage: (50 MG BID ORAL)
     Route: 048
  2. IODINE-CONTAINING VITAMIN [Concomitant]

REACTIONS (3)
  - HYPERTHYROIDISM [None]
  - THYROID CANCER [None]
  - THYROIDITIS [None]
